FAERS Safety Report 24253924 (Version 1)
Quarter: 2024Q3

REPORT INFORMATION
  Report Type: Spontaneous
  Country: US (occurrence: US)
  Receive Date: 20240827
  Receipt Date: 20240827
  Transmission Date: 20241017
  Serious: No
  Sender: BIOGEN
  Company Number: US-BIOGEN-2020BI00866752

PATIENT
  Sex: Male

DRUGS (5)
  1. PLEGRIDY [Suspect]
     Active Substance: PEGINTERFERON BETA-1A
     Indication: Multiple sclerosis
     Dosage: START DATE ALSO REPORTED AS 01-JAN-2018
     Route: 050
     Dates: start: 20171222
  2. BACLOFEN [Concomitant]
     Active Substance: BACLOFEN
     Route: 050
  3. CALCIUM [Concomitant]
     Active Substance: CALCIUM
     Route: 050
  4. CARBAMAZEPINE [Concomitant]
     Active Substance: CARBAMAZEPINE
     Route: 050
  5. IBUPROFEN [Concomitant]
     Active Substance: IBUPROFEN
     Route: 050

REACTIONS (3)
  - Visual impairment [Unknown]
  - Urinary incontinence [Unknown]
  - VIth nerve paralysis [Unknown]
